FAERS Safety Report 23267853 (Version 1)
Quarter: 2023Q4

REPORT INFORMATION
  Report Type: Other
  Country: None (occurrence: US)
  Receive Date: 20231206
  Receipt Date: 20231206
  Transmission Date: 20240109
  Serious: Yes (Life-Threatening)
  Sender: FDA-Public Use
  Company Number: US-B.Braun Medical Inc.-2149053

PATIENT
  Age: 30 Year
  Sex: Male

DRUGS (2)
  1. HEPARIN SODIUM IN DEXTROSE [Suspect]
     Active Substance: HEPARIN SODIUM
     Indication: Pulmonary embolism
  2. PHENTOLAMINE [Concomitant]
     Active Substance: PHENTOLAMINE

REACTIONS (1)
  - Tumour rupture [None]
